FAERS Safety Report 8155194-1 (Version None)
Quarter: 2012Q1

REPORT INFORMATION
  Report Type: 
  Country: None (occurrence: None)
  Receive Date: 20120222
  Receipt Date: 20120211
  Transmission Date: 20120608
  Serious: Yes (Other)
  Sender: FDA-Public Use
  Company Number: US-PAR PHARMACEUTICAL, INC-2012SCPR004211

PATIENT

DRUGS (1)
  1. TESTOSTERONE [Suspect]
     Indication: PRODUCT USED FOR UNKNOWN INDICATION
     Dosage: UNK UNK, UNKNOWN
     Route: 061

REACTIONS (3)
  - BLOOD TESTOSTERONE INCREASED [None]
  - EXPOSURE VIA PARTNER [None]
  - ANDROGENETIC ALOPECIA [None]
